FAERS Safety Report 5050487-9 (Version None)
Quarter: 2006Q3

REPORT INFORMATION
  Report Type: 
  Country: None (occurrence: None)
  Receive Date: 20060707
  Receipt Date: 20060615
  Transmission Date: 20061208
  Serious: No
  Sender: FDA-Public Use
  Company Number: 2006-143965-NL

PATIENT
  Sex: Female

DRUGS (1)
  1. DESOLETT [Suspect]

REACTIONS (1)
  - PULMONARY EMBOLISM [None]
